FAERS Safety Report 14859039 (Version 3)
Quarter: 2021Q3

REPORT INFORMATION
  Report Type: Spontaneous
  Country: US (occurrence: US)
  Receive Date: 20180508
  Receipt Date: 20210921
  Transmission Date: 20211014
  Serious: Yes (Disabling, Other)
  Sender: FDA-Public Use
  Company Number: US-TEVA-812291USA

PATIENT
  Age: 68 Year
  Sex: Female

DRUGS (23)
  1. TAXOTERE [Suspect]
     Active Substance: DOCETAXEL
     Indication: UTERINE LEIOMYOSARCOMA
     Dosage: NUMBER OF CYCLE ? 21, FREQUENCY ? EVERY THREE WEEKS,151MG,121 MG AND 108 MG
     Route: 065
     Dates: start: 20130716, end: 20131010
  2. DOCETAXEL ACCORD [Suspect]
     Active Substance: DOCETAXEL
     Indication: UTERINE LEIOMYOSARCOMA
     Dosage: NUMBER OF CYCLE ? 21, FREQUENCY ? EVERY THREE WEEKS , 151MG, 121 MG AND 108 MG
     Route: 065
     Dates: start: 20130716, end: 20131010
  3. DOCETAXEL ACCORD [Suspect]
     Active Substance: DOCETAXEL
     Dosage: NUMBER OF CYCLE ? 21, FREQUENCY ? EVERY THREE WEEKS , 151MG, 121 MG AND 108 MG
     Route: 065
     Dates: start: 20140922, end: 20151005
  4. DOCETAXEL SANOFI [Suspect]
     Active Substance: DOCETAXEL
     Indication: UTERINE LEIOMYOSARCOMA
     Dosage: NUMBER OF CYCLE ? 21, FREQUENCY ? EVERY THREE WEEKS , 151MG, 121 MG AND 108 MG
     Route: 065
     Dates: start: 20130716, end: 20131010
  5. BRIMONIDINE [Concomitant]
     Active Substance: BRIMONIDINE TARTRATE
     Route: 065
     Dates: start: 200906
  6. DOCETAXEL SANOFI [Suspect]
     Active Substance: DOCETAXEL
     Dosage: NUMBER OF CYCLE ? 21, FREQUENCY ? EVERY THREE WEEKS , 151MG, 121 MG AND 108 MG
     Route: 065
     Dates: start: 20140922, end: 20151005
  7. PHENAZOPYRIDINE. [Concomitant]
     Active Substance: PHENAZOPYRIDINE
     Route: 065
     Dates: start: 200906
  8. ASA [Concomitant]
     Active Substance: ASPIRIN
     Route: 065
  9. TAXOTERE [Suspect]
     Active Substance: DOCETAXEL
     Dosage: TAXOTERE 151 MG,121 MG, 108 MG
     Dates: start: 20140922, end: 20151005
  10. GEMZAR [Suspect]
     Active Substance: GEMCITABINE HYDROCHLORIDE
     Indication: UTERINE LEIOMYOSARCOMA
     Dosage: NUMBER OF CYCLE ? 21, FREQUENCY ? EVERY THREE WEEKS 1359 MG, 1057 MG, 900MG
     Route: 065
     Dates: start: 20130709, end: 20131010
  11. CALCIUM VITAMIN D [Concomitant]
     Active Substance: CALCIUM\VITAMIN D
     Route: 065
  12. NEUPOGEN [Concomitant]
     Active Substance: FILGRASTIM
     Route: 065
     Dates: start: 2009
  13. SIMVASTATIN. [Concomitant]
     Active Substance: SIMVASTATIN
     Route: 065
     Dates: start: 20070618
  14. ACETAMINOPHEN. [Concomitant]
     Active Substance: ACETAMINOPHEN
     Route: 065
     Dates: start: 200906
  15. DOCETAXEL SAGENT [Suspect]
     Active Substance: DOCETAXEL
     Indication: UTERINE LEIOMYOSARCOMA
     Dosage: NUMBER OF CYCLE ? 21, FREQUENCY ? EVERY THREE WEEKS , 151MG, 121 MG AND 108 MG
     Route: 065
     Dates: start: 20130716, end: 20131010
  16. DOCETAXEL SAGENT [Suspect]
     Active Substance: DOCETAXEL
     Dosage: NUMBER OF CYCLE ? 21, FREQUENCY ? EVERY THREE WEEKS , 151MG, 121 MG AND 108 MG
     Route: 065
     Dates: start: 20140922, end: 20151005
  17. GEMZAR [Suspect]
     Active Substance: GEMCITABINE HYDROCHLORIDE
     Dosage: NUMBER OF CYCLE ? 21, FREQUENCY ? EVERY THREE WEEKS 1359 MG, 1057 MG, 900MG
     Route: 065
     Dates: start: 20140915, end: 20150928
  18. LOSARTAN. [Concomitant]
     Active Substance: LOSARTAN
     Route: 065
     Dates: start: 200906
  19. CIPRO [Concomitant]
     Active Substance: CIPROFLOXACIN HYDROCHLORIDE
     Route: 065
     Dates: start: 200906
  20. BABY ASPIRIN [Concomitant]
     Active Substance: ASPIRIN
     Route: 065
  21. TIMOLOL. [Concomitant]
     Active Substance: TIMOLOL
     Route: 065
     Dates: start: 200906
  22. OXYCODONE [Concomitant]
     Active Substance: OXYCODONE
     Route: 065
     Dates: start: 200906
  23. FISH OIL [Concomitant]
     Active Substance: FISH OIL
     Route: 065

REACTIONS (30)
  - Fatigue [Recovered/Resolved]
  - Pain [Unknown]
  - Rash [Unknown]
  - Dyspnoea exertional [Unknown]
  - Anaemia [Unknown]
  - Mucosal inflammation [Unknown]
  - Hair colour changes [Not Recovered/Not Resolved]
  - Dry skin [Unknown]
  - Flatulence [Unknown]
  - Dyspepsia [Unknown]
  - Madarosis [Not Recovered/Not Resolved]
  - Myalgia [Unknown]
  - Cough [Unknown]
  - Rhinorrhoea [Unknown]
  - Drug eruption [Unknown]
  - Blood urine present [Unknown]
  - Eructation [Unknown]
  - Hair texture abnormal [Not Recovered/Not Resolved]
  - Skin exfoliation [Unknown]
  - Oropharyngeal pain [Unknown]
  - Pruritus [Unknown]
  - Neutropenia [Unknown]
  - Wheezing [Unknown]
  - Cystocele [Unknown]
  - Alopecia areata [Not Recovered/Not Resolved]
  - Abdominal discomfort [Unknown]
  - Pyrexia [Recovered/Resolved]
  - Diarrhoea [Recovered/Resolved]
  - Constipation [Unknown]
  - Nausea [Recovered/Resolved]

NARRATIVE: CASE EVENT DATE: 2013
